FAERS Safety Report 13616011 (Version 1)
Quarter: 2017Q2

REPORT INFORMATION
  Report Type: Spontaneous
  Country: US (occurrence: US)
  Receive Date: 20170605
  Receipt Date: 20170605
  Transmission Date: 20170830
  Serious: Yes (Hospitalization)
  Sender: FDA-Public Use
  Company Number: None

PATIENT
  Age: 65 Year
  Sex: Male
  Weight: 115 kg

DRUGS (1)
  1. WARFARIN [Suspect]
     Active Substance: WARFARIN
     Indication: ATRIAL FIBRILLATION
     Dosage: MG PO
     Route: 048
     Dates: start: 20101224, end: 20121104

REACTIONS (6)
  - Peripheral swelling [None]
  - Haemorrhage [None]
  - International normalised ratio increased [None]
  - Epistaxis [None]
  - Contusion [None]
  - Pain [None]

NARRATIVE: CASE EVENT DATE: 20121104
